FAERS Safety Report 6291735-7 (Version None)
Quarter: 2009Q3

REPORT INFORMATION
  Report Type: 
  Country: None (occurrence: None)
  Receive Date: 20090730
  Receipt Date: 20090721
  Transmission Date: 20100115
  Serious: Yes (Hospitalization, Other)
  Sender: FDA-Public Use
  Company Number: PHHY2009JP09187

PATIENT
  Sex: Female

DRUGS (3)
  1. TEGRETOL [Suspect]
     Indication: EPILEPSY
     Dosage: UNKNOWN
  2. TEGRETOL [Suspect]
     Dosage: 200 MG, 10 TAB, ONCE/SINGLE
     Route: 048
     Dates: start: 20090101, end: 20090101
  3. TEGRETOL [Suspect]
     Dosage: 400 MG/DAY
     Route: 048
     Dates: start: 20090110

REACTIONS (16)
  - ALTERED STATE OF CONSCIOUSNESS [None]
  - BLOOD GLUCOSE INCREASED [None]
  - BLOOD POTASSIUM DECREASED [None]
  - CORNEAL REFLEX DECREASED [None]
  - DRUG LEVEL INCREASED [None]
  - EYE OEDEMA [None]
  - LOSS OF CONSCIOUSNESS [None]
  - NAUSEA [None]
  - OVERDOSE [None]
  - POISONING [None]
  - PUPILLARY DISORDER [None]
  - RESTLESSNESS [None]
  - SUICIDE ATTEMPT [None]
  - TONIC CONVULSION [None]
  - VOMITING [None]
  - WHITE BLOOD CELL COUNT INCREASED [None]
